FAERS Safety Report 7057991-2 (Version None)
Quarter: 2010Q4

REPORT INFORMATION
  Report Type: 
  Country: None (occurrence: None)
  Receive Date: 20101022
  Receipt Date: 20101012
  Transmission Date: 20110411
  Serious: Yes (Other)
  Sender: FDA-Public Use
  Company Number: PHHY2010US68733

PATIENT
  Sex: Female

DRUGS (4)
  1. FEMARA [Suspect]
     Dosage: 2.5 MG, UNK
     Dates: start: 20100501
  2. COZAAR [Concomitant]
  3. PRAVASTATIN [Concomitant]
  4. ASPIRIN [Concomitant]

REACTIONS (2)
  - EYE HAEMORRHAGE [None]
  - MYALGIA [None]
